FAERS Safety Report 7032292-7 (Version None)
Quarter: 2010Q4

REPORT INFORMATION
  Report Type: 
  Country: None (occurrence: None)
  Receive Date: 20101007
  Receipt Date: 20100813
  Transmission Date: 20110411
  Serious: No
  Sender: FDA-Public Use
  Company Number: A0875749A

PATIENT
  Age: 66 Year
  Sex: Female

DRUGS (12)
  1. REQUIP XL [Suspect]
     Indication: PARKINSON'S DISEASE
     Dosage: 8MG IN THE MORNING
     Route: 048
     Dates: start: 20100201
  2. AZILECT [Concomitant]
  3. LIPITOR [Concomitant]
  4. SINGULAIR [Concomitant]
  5. NASONEX [Concomitant]
  6. GABAPENTIN [Concomitant]
  7. MULTI-VITAMIN [Concomitant]
  8. CITRACAL [Concomitant]
  9. ASCORBIC ACID [Concomitant]
  10. FISH OIL [Concomitant]
  11. ASTHMA DRUG [Concomitant]
  12. ALBUTEROL [Concomitant]

REACTIONS (4)
  - ABDOMINAL PAIN [None]
  - DRY MOUTH [None]
  - GASTRIC DISORDER [None]
  - NAUSEA [None]
